FAERS Safety Report 11034562 (Version 2)
Quarter: 2015Q2

REPORT INFORMATION
  Report Type: Spontaneous
  Country: US (occurrence: US)
  Receive Date: 20150415
  Receipt Date: 20150525
  Transmission Date: 20150821
  Serious: No
  Sender: FDA-Public Use
  Company Number: US-JNJFOC-20130506197

PATIENT
  Sex: Female

DRUGS (3)
  1. XARELTO [Suspect]
     Active Substance: RIVAROXABAN
     Indication: FACTOR V LEIDEN MUTATION
     Route: 048
     Dates: start: 20130401, end: 20130411
  2. XARELTO [Suspect]
     Active Substance: RIVAROXABAN
     Indication: PULMONARY EMBOLISM
     Route: 048
     Dates: start: 20130401, end: 20130411
  3. COUMADIN [Concomitant]
     Active Substance: WARFARIN SODIUM
     Indication: FACTOR V LEIDEN MUTATION
     Route: 065
     Dates: start: 20130104

REACTIONS (2)
  - Off label use [Unknown]
  - Chest pain [Recovered/Resolved]
